FAERS Safety Report 11814743 (Version 4)
Quarter: 2016Q1

REPORT INFORMATION
  Report Type: Spontaneous
  Country: None (occurrence: US)
  Receive Date: 20151209
  Receipt Date: 20160129
  Transmission Date: 20160525
  Serious: Yes (Hospitalization, Other)
  Sender: FDA-Public Use
  Company Number: US-MEDTRONIC-1045259

PATIENT
  Age: 12 Year
  Sex: Male

DRUGS (1)
  1. LIORESAL [Suspect]
     Active Substance: BACLOFEN
     Indication: MUSCLE SPASTICITY
     Route: 037

REACTIONS (3)
  - Device dislocation [None]
  - Complication associated with device [Not Recovered/Not Resolved]
  - Peritoneal perforation [Not Recovered/Not Resolved]

NARRATIVE: CASE EVENT DATE: 20151201
